APPROVED DRUG PRODUCT: NORETHINDRONE ACETATE AND ETHINYL ESTRADIOL
Active Ingredient: ETHINYL ESTRADIOL; NORETHINDRONE ACETATE
Strength: 0.0025MG;0.5MG
Dosage Form/Route: TABLET;ORAL
Application: A207260 | Product #001
Applicant: XIROMED LLC
Approved: Feb 2, 2017 | RLD: No | RS: No | Type: DISCN